FAERS Safety Report 8571942-0 (Version None)
Quarter: 2012Q3

REPORT INFORMATION
  Report Type: 
  Country: None (occurrence: None)
  Receive Date: 20120724
  Receipt Date: 20120710
  Transmission Date: 20120928
  Serious: Yes (Death)
  Sender: FDA-Public Use
  Company Number: MC201200445

PATIENT
  Age: 70 Year
  Sex: Male

DRUGS (1)
  1. ANGIOMAX [Suspect]
     Indication: STENT PLACEMENT

REACTIONS (1)
  - CARDIOGENIC SHOCK [None]
